FAERS Safety Report 18031326 (Version 1)
Quarter: 2020Q3

REPORT INFORMATION
  Report Type: Spontaneous
  Country: US (occurrence: US)
  Receive Date: 20200716
  Receipt Date: 20200716
  Transmission Date: 20201103
  Serious: Yes (Other)
  Sender: FDA-Public Use
  Company Number: None

PATIENT
  Age: 82 Year
  Sex: Female
  Weight: 96.75 kg

DRUGS (1)
  1. MG217 PSORIASIS MEDICATED CONDITIONING [Suspect]
     Active Substance: COAL TAR
     Indication: PSORIASIS
     Dosage: ?          OTHER STRENGTH:8 FL OZ;QUANTITY:8 OUNCE(S);OTHER FREQUENCY:2 X WEEK;?
     Route: 061
     Dates: start: 20200715, end: 20200716

REACTIONS (1)
  - Alopecia [None]

NARRATIVE: CASE EVENT DATE: 20200715
